FAERS Safety Report 25100133 (Version 1)
Quarter: 2025Q1

REPORT INFORMATION
  Report Type: Report from Study
  Country: RU (occurrence: RU)
  Receive Date: 20250320
  Receipt Date: 20250320
  Transmission Date: 20250409
  Serious: Yes (Hospitalization)
  Sender: EISAI
  Company Number: RU-Eisai-EC-2025-186086

PATIENT
  Age: 74 Year
  Sex: Female

DRUGS (3)
  1. LENVIMA [Suspect]
     Active Substance: LENVATINIB
     Indication: Thyroid cancer
     Dates: start: 202406, end: 202406
  2. LENVIMA [Suspect]
     Active Substance: LENVATINIB
     Dates: start: 202406, end: 202408
  3. LENVIMA [Suspect]
     Active Substance: LENVATINIB
     Dates: start: 202408

REACTIONS (4)
  - Blood pressure increased [Recovered/Resolved]
  - Angina pectoris [Recovered/Resolved]
  - Diarrhoea [Recovering/Resolving]
  - Cardiac discomfort [Recovered/Resolved]

NARRATIVE: CASE EVENT DATE: 20240601
